FAERS Safety Report 8536442-2 (Version None)
Quarter: 2012Q3

REPORT INFORMATION
  Report Type: 
  Country: None (occurrence: None)
  Receive Date: 20120725
  Receipt Date: 20120711
  Transmission Date: 20120928
  Serious: Yes (Hospitalization)
  Sender: FDA-Public Use
  Company Number: FR-MYLANLABS-2012S1014317

PATIENT
  Age: 42 Year
  Sex: Male

DRUGS (8)
  1. CYCLOSPORINE [Concomitant]
     Indication: IMMUNOSUPPRESSANT DRUG THERAPY
     Route: 065
  2. CEFTRIAXONE [Concomitant]
     Indication: EVIDENCE BASED TREATMENT
     Route: 065
  3. GENTAMICIN [Concomitant]
     Indication: EVIDENCE BASED TREATMENT
     Route: 042
  4. VALACICLOVIR [Concomitant]
     Indication: EVIDENCE BASED TREATMENT
     Route: 065
  5. PIPERACILLIN AND TAZOBACTAM [Concomitant]
     Indication: PERIHEPATIC ABSCESS
     Route: 065
  6. GENTAMICIN [Concomitant]
     Indication: PERIHEPATIC ABSCESS
  7. VANCOMYCIN [Suspect]
     Indication: PERIHEPATIC ABSCESS
     Dosage: 1 INJECTION GIVEN AT EACH HAEMODIALYSIS SESSION
  8. PREDNISONE [Concomitant]
     Indication: IMMUNOSUPPRESSANT DRUG THERAPY
     Dosage: 5 MG/DAY
     Route: 065

REACTIONS (1)
  - HENOCH-SCHONLEIN PURPURA [None]
